FAERS Safety Report 24262693 (Version 1)
Quarter: 2024Q3

REPORT INFORMATION
  Report Type: Spontaneous
  Country: US (occurrence: US)
  Receive Date: 20240829
  Receipt Date: 20240829
  Transmission Date: 20241017
  Serious: Yes (Other)
  Sender: AMERICAN REGENT
  Company Number: US-AMERICAN REGENT INC-2024003293

PATIENT
  Age: 77 Year
  Sex: Male

DRUGS (1)
  1. OLANZAPINE [Suspect]
     Active Substance: OLANZAPINE
     Indication: Major depression
     Dosage: UNK; 1 DOSE
     Route: 065

REACTIONS (3)
  - Delirium [Recovered/Resolved]
  - Anticholinergic syndrome [Recovered/Resolved]
  - Product use in unapproved indication [Recovered/Resolved]
